FAERS Safety Report 5692237-9 (Version None)
Quarter: 2008Q2

REPORT INFORMATION
  Report Type: 
  Country: None (occurrence: None)
  Receive Date: 20080402
  Receipt Date: 20080327
  Transmission Date: 20081010
  Serious: Yes (Other)
  Sender: FDA-Public Use
  Company Number: SA-ALLERGAN-0803787US

PATIENT
  Sex: Male

DRUGS (2)
  1. GATIFLOXACIN SESQUIHYDRATE UNK [Suspect]
     Indication: PTERYGIUM
     Dosage: 1 GTT, Q2HR
     Route: 047
     Dates: end: 20060901
  2. GATIFLOXACIN SESQUIHYDRATE UNK [Suspect]
     Indication: INFLAMMATION

REACTIONS (4)
  - CORNEAL PERFORATION [None]
  - EYE PRURITUS [None]
  - FOREIGN BODY SENSATION IN EYES [None]
  - OCULAR HYPERAEMIA [None]
